FAERS Safety Report 9443588 (Version 2)
Quarter: 2013Q3

REPORT INFORMATION
  Report Type: Spontaneous
  Country: US (occurrence: US)
  Receive Date: 20130806
  Receipt Date: 20130917
  Transmission Date: 20140515
  Serious: Yes (Other)
  Sender: FDA-Public Use
  Company Number: US-FRI-1000047453

PATIENT
  Age: 74 Year
  Sex: Female

DRUGS (3)
  1. BYSTOLIC [Suspect]
     Indication: ARRHYTHMIA
     Dosage: 2.5 MG
     Route: 048
     Dates: start: 201302
  2. CALCIUM [Concomitant]
  3. GLUCOSAMINE [Concomitant]

REACTIONS (3)
  - Heart rate decreased [Recovered/Resolved]
  - Blood pressure fluctuation [Recovered/Resolved]
  - Off label use [Not Recovered/Not Resolved]
